FAERS Safety Report 14293955 (Version 4)
Quarter: 2018Q2

REPORT INFORMATION
  Report Type: Spontaneous
  Country: JP (occurrence: JP)
  Receive Date: 20171216
  Receipt Date: 20180503
  Transmission Date: 20180711
  Serious: Yes (Other)
  Sender: FDA-Public Use
  Company Number: JP-TEVA-2017-JP-835949

PATIENT
  Age: 67 Year
  Sex: Female

DRUGS (12)
  1. CYCLOPHOSPHAMIDE MONOHYDRATE [Suspect]
     Active Substance: CYCLOPHOSPHAMIDE
     Indication: PRODUCT USED FOR UNKNOWN INDICATION
     Route: 065
  2. VONOPRAZAN [Concomitant]
     Active Substance: VONOPRAZAN
     Indication: PROPHYLAXIS
     Route: 048
     Dates: start: 20170217
  3. ATOVAQUONE. [Concomitant]
     Active Substance: ATOVAQUONE
     Indication: ANTIFUNGAL PROPHYLAXIS
     Route: 048
     Dates: start: 20170404, end: 20180312
  4. DEXAMETHASONE SODIUM PHOSPHATE. [Concomitant]
     Active Substance: DEXAMETHASONE SODIUM PHOSPHATE
     Indication: PROPHYLAXIS OF NAUSEA AND VOMITING
     Route: 041
     Dates: start: 20171016, end: 20171017
  5. ACICLOVIR [Concomitant]
     Active Substance: ACYCLOVIR
     Indication: ANTIVIRAL PROPHYLAXIS
     Route: 048
     Dates: start: 20171015, end: 20180312
  6. DEXAMETHASONE SODIUM PHOSPHATE. [Concomitant]
     Active Substance: DEXAMETHASONE SODIUM PHOSPHATE
     Route: 041
     Dates: start: 20171107, end: 20171108
  7. BENDAMUSTINE HYDROCHLORIDE. [Suspect]
     Active Substance: BENDAMUSTINE HYDROCHLORIDE
     Dosage: (CYCLE 2)
     Route: 041
     Dates: start: 20171107, end: 20171108
  8. ITRACONAZOLE. [Concomitant]
     Active Substance: ITRACONAZOLE
     Indication: ANTIFUNGAL PROPHYLAXIS
     Route: 048
     Dates: start: 20171029, end: 20171127
  9. RITUXIMAB. [Concomitant]
     Active Substance: RITUXIMAB
     Indication: ROUTINE HEALTH MAINTENANCE
     Route: 065
     Dates: start: 201706
  10. GRANISETRON HYDROCHLORIDE. [Concomitant]
     Active Substance: GRANISETRON HYDROCHLORIDE
     Indication: PROPHYLAXIS OF NAUSEA AND VOMITING
     Route: 041
     Dates: start: 20171016, end: 20171017
  11. GRANISETRON HYDROCHLORIDE. [Concomitant]
     Active Substance: GRANISETRON HYDROCHLORIDE
     Route: 041
     Dates: start: 20171107, end: 20171108
  12. BENDAMUSTINE HYDROCHLORIDE. [Suspect]
     Active Substance: BENDAMUSTINE HYDROCHLORIDE
     Indication: NON-HODGKIN^S LYMPHOMA
     Dosage: (CYCLE 1)
     Route: 041
     Dates: start: 20171016, end: 20171017

REACTIONS (6)
  - Mitral valve incompetence [Recovering/Resolving]
  - Ascites [Unknown]
  - Diarrhoea [Unknown]
  - Pleural effusion [Unknown]
  - Cardiomyopathy [Recovering/Resolving]
  - Prescribed underdose [Unknown]

NARRATIVE: CASE EVENT DATE: 20171127
